FAERS Safety Report 12976032 (Version 1)
Quarter: 2016Q4

REPORT INFORMATION
  Report Type: Report from Study
  Country: HU (occurrence: HU)
  Receive Date: 20161126
  Receipt Date: 20161126
  Transmission Date: 20170207
  Serious: Yes (Death, Life-Threatening, Hospitalization, Disabling, Other)
  Sender: FDA-Public Use
  Company Number: HU-ASTRAZENECA-2014SE77199

PATIENT
  Age: 68 Year
  Sex: Female

DRUGS (16)
  1. ATORVASTATIN [Concomitant]
     Active Substance: ATORVASTATIN
     Indication: HYPERLIPIDAEMIA
     Dosage: 10.0MG UNKNOWN
     Route: 048
  2. PANTOPRASOLE [Concomitant]
     Indication: GASTRITIS EROSIVE
     Dosage: 40.0MG UNKNOWN
     Route: 048
  3. COSOPT OPHTHALMIC [Concomitant]
     Indication: GLAUCOMA
     Dosage: 1.0GTT UNKNOWN
     Route: 047
  4. AZD6140 [Suspect]
     Active Substance: TICAGRELOR
     Indication: CARDIOVASCULAR EVENT PROPHYLAXIS
     Route: 048
     Dates: start: 20140623, end: 20141010
  5. XANAX [Concomitant]
     Active Substance: ALPRAZOLAM
     Indication: ANXIETY
     Dosage: 0.5MG UNKNOWN
     Route: 048
  6. SERMION [Concomitant]
     Active Substance: NICERGOLINE
     Indication: PERSISTENT DEPRESSIVE DISORDER
     Dosage: 30.0MG UNKNOWN
     Route: 048
  7. NOOTROPIL [Concomitant]
     Active Substance: PIRACETAM
     Indication: COGNITIVE DISORDER
     Dosage: 2400.0MG UNKNOWN
     Route: 048
  8. TRIMETAZIDIN [Concomitant]
     Indication: ARTERIOSPASM CORONARY
     Dosage: 70.0MG UNKNOWN
     Route: 048
  9. SIRDALUD [Concomitant]
     Active Substance: TIZANIDINE
     Indication: OSTEOARTHRITIS
     Dosage: 6.0MG UNKNOWN
     Route: 048
  10. ACETILSALICILIC ACID [Concomitant]
     Indication: MYOCARDIAL ISCHAEMIA
     Dosage: 100.0MG UNKNOWN
     Route: 048
  11. MEFORAL [Concomitant]
     Active Substance: METFORMIN HYDROCHLORIDE
     Indication: DIABETES MELLITUS
     Dosage: 1000.0MG UNKNOWN
     Route: 048
  12. RILMENIDIN [Concomitant]
     Active Substance: RILMENIDINE
     Indication: HYPERTENSION
     Dosage: 1.0MG UNKNOWN
     Route: 048
  13. PERINDOPRIL [Concomitant]
     Active Substance: PERINDOPRIL
     Indication: HYPERTENSION
     Dosage: 4.0MG UNKNOWN
     Route: 048
  14. BLOCALCIN [Concomitant]
     Active Substance: DILTIAZEM HYDROCHLORIDE
     Indication: ARTERIOSPASM CORONARY
     Dosage: 30.0MG UNKNOWN
     Route: 048
  15. SERTRALINE [Concomitant]
     Active Substance: SERTRALINE HYDROCHLORIDE
     Indication: PERSISTENT DEPRESSIVE DISORDER
     Dosage: 50.0MG UNKNOWN
     Route: 048
  16. BRINALDIX [Concomitant]
     Indication: HYPERTENSION
     Dosage: 20.0MG UNKNOWN
     Route: 048

REACTIONS (1)
  - Haemorrhagic stroke [Fatal]

NARRATIVE: CASE EVENT DATE: 20141010
